FAERS Safety Report 9933312 (Version 2)
Quarter: 2014Q1

REPORT INFORMATION
  Report Type: Report from Study
  Country: US (occurrence: US)
  Receive Date: 20140228
  Receipt Date: 20140228
  Transmission Date: 20141002
  Serious: No
  Sender: FDA-Public Use
  Company Number: US-MYLANLABS-2013S1004660

PATIENT
  Age: 19 Year
  Sex: Male
  Weight: 99.79 kg

DRUGS (3)
  1. CLARAVIS [Suspect]
     Indication: ACNE CYSTIC
     Dates: start: 201211, end: 201212
  2. ABSORICA [Suspect]
     Indication: ACNE CYSTIC
     Dates: start: 201212, end: 201212
  3. AMNESTEEM CAPSULES [Suspect]
     Indication: ACNE CYSTIC
     Dates: start: 201212, end: 201301

REACTIONS (3)
  - Depression [Recovered/Resolved]
  - Mood altered [Recovered/Resolved]
  - Unevaluable event [Recovered/Resolved]
